FAERS Safety Report 24150337 (Version 1)
Quarter: 2024Q3

REPORT INFORMATION
  Report Type: Report from Study
  Country: US (occurrence: US)
  Receive Date: 20240730
  Receipt Date: 20240730
  Transmission Date: 20241017
  Serious: Yes (Hospitalization)
  Sender: TAKEDA
  Company Number: US-TAKEDA-2024TUS030406

PATIENT
  Age: 78 Year
  Sex: Female

DRUGS (6)
  1. PONATINIB [Suspect]
     Active Substance: PONATINIB
     Indication: Acute lymphocytic leukaemia
     Dosage: 30 MILLIGRAM, QD
     Route: 048
  2. PONATINIB [Suspect]
     Active Substance: PONATINIB
     Indication: Essential hypertension
     Dosage: 30 MILLIGRAM, QD
     Route: 048
  3. PONATINIB [Suspect]
     Active Substance: PONATINIB
     Dosage: 30 MILLIGRAM, QD
     Route: 048
  4. ASPIRIN [Concomitant]
     Active Substance: ASPIRIN
     Dosage: UNK
     Route: 065
  5. LISINOPRIL [Concomitant]
     Active Substance: LISINOPRIL
     Dosage: UNK
     Route: 065
  6. SENNA [Concomitant]
     Active Substance: SENNA LEAF\SENNOSIDES\SENNOSIDES A AND B
     Dosage: 50 MILLIGRAM, QD
     Route: 065

REACTIONS (9)
  - Hospitalisation [Unknown]
  - Memory impairment [Unknown]
  - Musculoskeletal stiffness [Unknown]
  - Myalgia [Unknown]
  - Abdominal pain upper [Unknown]
  - Blood pressure increased [Unknown]
  - Constipation [Unknown]
  - Product dose omission issue [Unknown]
  - Off label use [Unknown]

NARRATIVE: CASE EVENT DATE: 20240722
